FAERS Safety Report 15982314 (Version 1)
Quarter: 2019Q1

REPORT INFORMATION
  Report Type: Spontaneous
  Country: MX (occurrence: MX)
  Receive Date: 20190219
  Receipt Date: 20190219
  Transmission Date: 20190418
  Serious: Yes (Hospitalization, Other)
  Sender: FDA-Public Use
  Company Number: MX-PFIZER INC-2019070091

PATIENT
  Age: 88 Year
  Sex: Female
  Weight: 43 kg

DRUGS (3)
  1. CORDARONE [Suspect]
     Active Substance: AMIODARONE HYDROCHLORIDE
     Indication: CARDIAC DISORDER
     Dosage: 200 MG, 1X/DAY
     Route: 048
     Dates: start: 2006
  2. CONCOR [Concomitant]
     Active Substance: BISOPROLOL FUMARATE
     Indication: CARDIAC DISORDER
     Dosage: UNK
     Dates: start: 2016
  3. ASPIRIN PROTECT [Concomitant]
     Active Substance: ASPIRIN
     Indication: CARDIAC DISORDER
     Dosage: 100 MG, UNK
     Dates: start: 2016

REACTIONS (2)
  - Senile dementia [Unknown]
  - Embolism [Recovered/Resolved]

NARRATIVE: CASE EVENT DATE: 201811
